FAERS Safety Report 5521426-9 (Version None)
Quarter: 2007Q4

REPORT INFORMATION
  Report Type: 
  Country: None (occurrence: None)
  Receive Date: 20071119
  Receipt Date: 20071108
  Transmission Date: 20080405
  Serious: Yes (Other)
  Sender: FDA-Public Use
  Company Number: US-PFIZER INC-2007094916

PATIENT
  Sex: Female
  Weight: 72.6 kg

DRUGS (4)
  1. CHANTIX [Suspect]
     Indication: SMOKING CESSATION THERAPY
     Dates: start: 20071105, end: 20071108
  2. NEXIUM [Concomitant]
  3. LEXAPRO [Concomitant]
  4. CLONAZEPAM [Concomitant]

REACTIONS (5)
  - PRURITUS [None]
  - RASH [None]
  - RASH MACULAR [None]
  - RASH PRURITIC [None]
  - SWELLING FACE [None]
